FAERS Safety Report 7455170-8 (Version None)
Quarter: 2011Q2

REPORT INFORMATION
  Report Type: 
  Country: None (occurrence: None)
  Receive Date: 20110503
  Receipt Date: 20110419
  Transmission Date: 20111010
  Serious: Yes (Other)
  Sender: FDA-Public Use
  Company Number: PHHY2011BR33290

PATIENT
  Sex: Female

DRUGS (5)
  1. LEPONEX [Suspect]
     Dosage: 25 MG,
  2. ROHYPNOL [Concomitant]
     Indication: INSOMNIA
     Dosage: 2 TABLETS AT NIGHT,
     Route: 048
  3. LEPONEX [Suspect]
     Dosage: 100 MG, 0.5 TABLETS BID
  4. AMITRIPTYLINE [Concomitant]
     Indication: DEPRESSION
     Dosage: 25 MG, 2 TABLETS IN THE MORNING, 1 TABLET IN THE AFTERNOON
  5. LORAX                                   /BRA/ [Concomitant]
     Indication: INSOMNIA
     Dosage: 1 TABLET IN THE MORNING AND 2 TABLETS AT NIGHT
     Route: 048

REACTIONS (8)
  - LIMB DEFORMITY [None]
  - PHARYNGEAL DISORDER [None]
  - ASTHENIA [None]
  - GAIT DISTURBANCE [None]
  - APHONIA [None]
  - DIZZINESS [None]
  - TREMOR [None]
  - MOVEMENT DISORDER [None]
